FAERS Safety Report 20358495 (Version 1)
Quarter: 2022Q1

REPORT INFORMATION
  Report Type: Report from Study
  Country: MX (occurrence: MX)
  Receive Date: 20220120
  Receipt Date: 20220120
  Transmission Date: 20220424
  Serious: Yes (Hospitalization, Other)
  Sender: FDA-Public Use
  Company Number: MX-002147023-NVSC2021MX271744

PATIENT

DRUGS (6)
  1. RUXOLITINIB [Suspect]
     Active Substance: RUXOLITINIB
     Indication: Acute myeloid leukaemia
     Dosage: 5 MG, BID
     Route: 048
     Dates: start: 2019
  2. RUXOLITINIB [Suspect]
     Active Substance: RUXOLITINIB
     Dosage: 5 MG, BID
     Route: 048
     Dates: start: 2020
  3. RUXOLITINIB [Suspect]
     Active Substance: RUXOLITINIB
     Dosage: 1 DOSAGE FORM, QD
     Route: 065
     Dates: start: 2020
  4. SENOVITAL [Concomitant]
     Indication: Product used for unknown indication
     Dosage: 10 MG, QD
     Route: 048
     Dates: start: 2018
  5. INNOVAIR [Concomitant]
     Active Substance: BECLOMETHASONE DIPROPIONATE\FORMOTEROL
     Indication: Product used for unknown indication
     Dosage: 4, QD
     Route: 055
     Dates: start: 2018
  6. SIG [Concomitant]
     Indication: Cardiac failure
     Dosage: 5 MG, QD (2 YEARS AGO)
     Route: 048

REACTIONS (9)
  - Cough [Not Recovered/Not Resolved]
  - COVID-19 [Recovered/Resolved with Sequelae]
  - Fatigue [Not Recovered/Not Resolved]
  - Off label use [Not Recovered/Not Resolved]
  - Weight decreased [Recovered/Resolved with Sequelae]
  - Productive cough [Not Recovered/Not Resolved]
  - Product use in unapproved indication [Not Recovered/Not Resolved]
  - Pneumonia [Recovering/Resolving]
  - Disease recurrence [Recovered/Resolved]

NARRATIVE: CASE EVENT DATE: 20190101
